FAERS Safety Report 8014889-0 (Version None)
Quarter: 2011Q4

REPORT INFORMATION
  Report Type: 
  Country: None (occurrence: None)
  Receive Date: 20111229
  Receipt Date: 20111222
  Transmission Date: 20120403
  Serious: Yes (Other)
  Sender: FDA-Public Use
  Company Number: US-BAXTER-2011BH040379

PATIENT

DRUGS (1)
  1. SUPRANE [Suspect]
     Indication: SURGERY
     Route: 065

REACTIONS (2)
  - PREMATURE RECOVERY FROM ANAESTHESIA [None]
  - DEVICE ISSUE [None]
